FAERS Safety Report 5264888-7 (Version None)
Quarter: 2007Q1

REPORT INFORMATION
  Report Type: 
  Country: None (occurrence: None)
  Receive Date: 20061117
  Receipt Date: 20060830
  Transmission Date: 20070707
  Serious: Yes (Other)
  Sender: FDA-Public Use
  Company Number: US-JNJFOC-20060800723

PATIENT
  Age: 46 Year
  Sex: Female
  Weight: 46.7205 kg

DRUGS (1)
  1. LEVAQUIN [Suspect]
     Indication: BRONCHIECTASIS
     Dosage: 500  MG, 1 IN 1 DAY, ORAL
     Route: 048
     Dates: start: 20060801, end: 20060801

REACTIONS (2)
  - SPEECH DISORDER [None]
  - TACHYCARDIA [None]
